FAERS Safety Report 15888546 (Version 2)
Quarter: 2019Q1

REPORT INFORMATION
  Report Type: Spontaneous
  Country: US (occurrence: US)
  Receive Date: 20190130
  Receipt Date: 20190320
  Transmission Date: 20190417
  Serious: Yes (Hospitalization)
  Sender: FDA-Public Use
  Company Number: US-DSJP-DSU-2017-153934

PATIENT

DRUGS (5)
  1. BENICAR [Suspect]
     Active Substance: OLMESARTAN MEDOXOMIL
     Dosage: 10 MG, QD
     Dates: end: 20140319
  2. BENICAR [Suspect]
     Active Substance: OLMESARTAN MEDOXOMIL
     Indication: HYPERTENSION
     Dosage: 20 MG, QD
     Dates: start: 20111031
  3. BENICAR [Suspect]
     Active Substance: OLMESARTAN MEDOXOMIL
     Dosage: 40 MG, QD
     Dates: end: 20140115
  4. BENICAR [Suspect]
     Active Substance: OLMESARTAN MEDOXOMIL
     Dosage: 20 MG HALF TABLET, QD
     Dates: start: 20140115
  5. BENICAR [Suspect]
     Active Substance: OLMESARTAN MEDOXOMIL
     Dosage: 5 MG, QD
     Route: 048

REACTIONS (7)
  - Large intestine polyp [Recovered/Resolved]
  - Rash [Recovered/Resolved]
  - Sprue-like enteropathy [Recovered/Resolved]
  - Haemorrhoids [Unknown]
  - Coeliac disease [Recovering/Resolving]
  - Oesophagitis [Unknown]
  - Product administration error [Unknown]

NARRATIVE: CASE EVENT DATE: 201110
